FAERS Safety Report 16198795 (Version 1)
Quarter: 2019Q2

REPORT INFORMATION
  Report Type: Spontaneous
  Country: JP (occurrence: JP)
  Receive Date: 20190415
  Receipt Date: 20190415
  Transmission Date: 20190711
  Serious: Yes (Other)
  Sender: FDA-Public Use
  Company Number: JP-PFIZER INC-2019151722

PATIENT
  Age: 10 Decade
  Sex: Female

DRUGS (1)
  1. LYRICA [Suspect]
     Active Substance: PREGABALIN
     Indication: HERPES ZOSTER
     Dosage: 300 MG, UNK

REACTIONS (3)
  - Fracture [Unknown]
  - Dizziness [Unknown]
  - Fall [Unknown]
